FAERS Safety Report 9252121 (Version 1)
Quarter: 2013Q1

REPORT INFORMATION
  Report Type: Spontaneous
  Country: US (occurrence: None)
  Receive Date: 20130305
  Receipt Date: 20130305
  Transmission Date: 20140127
  Serious: Yes (Other)
  Sender: FDA-Public Use
  Company Number: 163-21880-12081958 (0)

PATIENT
  Age: 76 Year
  Sex: Female
  Weight: 71.6 kg

DRUGS (2)
  1. REVLIMID [Suspect]
     Indication: PLASMA CELL MYELOMA
     Dosage: 10 MG, 21 IN 28 D
     Route: 048
     Dates: start: 20100628
  2. AREDIA (PAMIDRONATE DISODIUM) (INJECTION) [Concomitant]

REACTIONS (1)
  - Skin hyperpigmentation [None]
